FAERS Safety Report 17640652 (Version 1)
Quarter: 2020Q2

REPORT INFORMATION
  Report Type: Spontaneous
  Country: US (occurrence: US)
  Receive Date: 20200408
  Receipt Date: 20200408
  Transmission Date: 20200713
  Serious: No
  Sender: FDA-Public Use
  Company Number: US-ASTRAZENECA-2020SE45325

PATIENT
  Age: 544 Month
  Sex: Female
  Weight: 117.9 kg

DRUGS (3)
  1. BYDUREON BCISE [Suspect]
     Active Substance: EXENATIDE
     Indication: DIABETES MELLITUS
     Route: 058
  2. JANUMET XR [Concomitant]
     Active Substance: METFORMIN HYDROCHLORIDE\SITAGLIPTIN PHOSPHATE
     Indication: DIABETES MELLITUS
     Route: 048
  3. JARDIANCE [Concomitant]
     Active Substance: EMPAGLIFLOZIN
     Indication: DIABETES MELLITUS
     Route: 048

REACTIONS (7)
  - Device malfunction [Unknown]
  - Injection site bruising [Recovering/Resolving]
  - Wrong technique in device usage process [Unknown]
  - Injection site pain [Unknown]
  - Insurance issue [Unknown]
  - Injection site erythema [Unknown]
  - Product dose omission [Unknown]

NARRATIVE: CASE EVENT DATE: 202003
